FAERS Safety Report 15506843 (Version 2)
Quarter: 2018Q4

REPORT INFORMATION
  Report Type: Spontaneous
  Country: US (occurrence: US)
  Receive Date: 20181016
  Receipt Date: 20181129
  Transmission Date: 20190205
  Serious: Yes (Other)
  Sender: FDA-Public Use
  Company Number: US-JNJFOC-20181017855

PATIENT
  Age: 85 Year
  Sex: Male

DRUGS (1)
  1. ZYTIGA [Suspect]
     Active Substance: ABIRATERONE ACETATE
     Indication: PROSTATE CANCER
     Route: 048
     Dates: start: 20180412, end: 20180925

REACTIONS (3)
  - Drug ineffective [Unknown]
  - Blood test abnormal [Unknown]
  - Vision blurred [Unknown]

NARRATIVE: CASE EVENT DATE: 2018
